FAERS Safety Report 7565029-3 (Version None)
Quarter: 2011Q2

REPORT INFORMATION
  Report Type: 
  Country: None (occurrence: None)
  Receive Date: 20110622
  Receipt Date: 20110408
  Transmission Date: 20111010
  Serious: Yes (Other)
  Sender: FDA-Public Use
  Company Number: US-MYLANLABS-2011S1007218

PATIENT
  Age: 40 Year
  Sex: Male

DRUGS (1)
  1. CLOZAPINE [Suspect]
     Route: 048
     Dates: end: 20110224

REACTIONS (1)
  - GRANULOCYTOPENIA [None]
